FAERS Safety Report 13497180 (Version 1)
Quarter: 2017Q2

REPORT INFORMATION
  Report Type: Report from Study
  Country: GB (occurrence: GB)
  Receive Date: 20170428
  Receipt Date: 20170428
  Transmission Date: 20170830
  Serious: Yes (Death)
  Sender: FDA-Public Use
  Company Number: GB-PFIZER INC-2017180193

PATIENT

DRUGS (3)
  1. THIOTEPA. [Suspect]
     Active Substance: THIOTEPA
     Indication: GERM CELL CANCER
     Dosage: 125 MG/M2, DAILY (GIVEN AS A CONTINUOUS INFUSION ON DAYS 1-4)
     Route: 041
  2. TOPOTECAN [Suspect]
     Active Substance: TOPOTECAN HYDROCHLORIDE
     Indication: GERM CELL CANCER
     Dosage: 10 MG/M2, CYCLIC (ON DAYS 1, 2 AND 3)
  3. CARBOPLATIN. [Suspect]
     Active Substance: CARBOPLATIN
     Indication: GERM CELL CANCER
     Dosage: AUC7

REACTIONS (2)
  - Neutropenic sepsis [Fatal]
  - Acute respiratory distress syndrome [Fatal]
